FAERS Safety Report 5336637-5 (Version None)
Quarter: 2007Q2

REPORT INFORMATION
  Report Type: 
  Country: None (occurrence: None)
  Receive Date: 20070529
  Receipt Date: 20070524
  Transmission Date: 20071010
  Serious: Yes (Hospitalization)
  Sender: FDA-Public Use
  Company Number: DE-AVENTIS-200711368DE

PATIENT
  Age: 65 Year
  Sex: Female
  Weight: 80 kg

DRUGS (4)
  1. DOCETAXEL [Suspect]
     Route: 042
     Dates: start: 20070516
  2. DEXAMETHASONE [Concomitant]
     Route: 042
     Dates: start: 20070516, end: 20070516
  3. DEXAMETHASONE [Concomitant]
     Route: 048
     Dates: start: 20070515, end: 20070518
  4. KEVATRIL [Concomitant]
     Route: 042
     Dates: start: 20070516

REACTIONS (3)
  - NAUSEA [None]
  - NEUTROPENIA [None]
  - VERTIGO [None]
